FAERS Safety Report 9298400 (Version 1)
Quarter: 2013Q2

REPORT INFORMATION
  Report Type: Spontaneous
  Country: BR (occurrence: BR)
  Receive Date: 20130520
  Receipt Date: 20130520
  Transmission Date: 20140414
  Serious: Yes (Hospitalization)
  Sender: FDA-Public Use
  Company Number: BR-B.I. PHARMACEUTICALS,INC./RIDGEFIELD-2013-BR-00550BR

PATIENT
  Age: 51 Year
  Sex: Female

DRUGS (3)
  1. ATROVENT [Suspect]
     Indication: ABDOMINAL PAIN
     Route: 048
  2. ATROVENT [Suspect]
     Indication: DIARRHOEA
  3. BUSCOPAN [Suspect]
     Indication: ABDOMINAL PAIN
     Route: 048
     Dates: start: 20130506

REACTIONS (6)
  - Diarrhoea [Not Recovered/Not Resolved]
  - Abdominal pain [Not Recovered/Not Resolved]
  - Dry mouth [Not Recovered/Not Resolved]
  - Vision blurred [Not Recovered/Not Resolved]
  - Drug administration error [Not Recovered/Not Resolved]
  - Drug ineffective [Not Recovered/Not Resolved]
